FAERS Safety Report 25484843 (Version 2)
Quarter: 2025Q3

REPORT INFORMATION
  Report Type: Spontaneous
  Country: CA (occurrence: CA)
  Receive Date: 20250626
  Receipt Date: 20250729
  Transmission Date: 20251021
  Serious: Yes (Death, Life-Threatening, Hospitalization, Disabling, Congenital Anomaly, Other)
  Sender: ANI
  Company Number: CA-ANIPHARMA-2025-CA-002040

PATIENT
  Age: 40 Year
  Sex: Female

DRUGS (19)
  1. CANDESARTAN CILEXETIL [Suspect]
     Active Substance: CANDESARTAN CILEXETIL
     Indication: Rheumatoid arthritis
  2. TRAZODONE [Suspect]
     Active Substance: TRAZODONE HYDROCHLORIDE
  3. TRETINOIN [Suspect]
     Active Substance: TRETINOIN
  4. TRIAMCINOLONE [Suspect]
     Active Substance: TRIAMCINOLONE
  5. HYRIMOZ [Suspect]
     Active Substance: ADALIMUMAB-ADAZ
  6. APREMILAST [Suspect]
     Active Substance: APREMILAST
  7. ATOMOXETINE HYDROCHLORIDE [Suspect]
     Active Substance: ATOMOXETINE HYDROCHLORIDE
  8. CELECOXIB [Suspect]
     Active Substance: CELECOXIB
  9. HYDROCORTISONE [Suspect]
     Active Substance: HYDROCORTISONE
  10. LEFLUNOMIDE [Suspect]
     Active Substance: LEFLUNOMIDE
  11. TOPIRAMATE [Suspect]
     Active Substance: TOPIRAMATE
  12. PANTOPRAZOLE SODIUM [Suspect]
     Active Substance: PANTOPRAZOLE SODIUM
  13. CALCIUM CARBONATE [Suspect]
     Active Substance: CALCIUM CARBONATE
  14. METHOTREXATE [Suspect]
     Active Substance: METHOTREXATE
  15. TRAMADOL [Suspect]
     Active Substance: TRAMADOL
  16. PHENYLEPHRINE [Suspect]
     Active Substance: PHENYLEPHRINE
  17. CELECOXIB [Suspect]
     Active Substance: CELECOXIB
  18. SODIUM AUROTIOSULFATE [Suspect]
     Active Substance: SODIUM AUROTIOSULFATE
  19. TOPIRAMATE [Suspect]
     Active Substance: TOPIRAMATE

REACTIONS (4)
  - Abdominal distension [Not Recovered/Not Resolved]
  - Exposure during pregnancy [Not Recovered/Not Resolved]
  - Maternal exposure during pregnancy [Not Recovered/Not Resolved]
  - Product use in unapproved indication [Unknown]
